FAERS Safety Report 14314424 (Version 5)
Quarter: 2020Q2

REPORT INFORMATION
  Report Type: Spontaneous
  Country: US (occurrence: US)
  Receive Date: 20171221
  Receipt Date: 20200513
  Transmission Date: 20200713
  Serious: Yes (Other)
  Sender: FDA-Public Use
  Company Number: US-BIOMARINAP-US-2017-116476

PATIENT
  Age: 32 Year
  Sex: Male

DRUGS (3)
  1. ALDURAZYME [Suspect]
     Active Substance: LARONIDASE
     Indication: MUCOPOLYSACCHARIDOSIS I
     Dosage: 46.4 MILLIGRAM, QW
     Route: 042
     Dates: start: 20060117
  2. ALDURAZYME [Suspect]
     Active Substance: LARONIDASE
     Dosage: 46.4 INTERNATIONAL UNIT, QW
     Route: 042
     Dates: start: 20061103, end: 20171128
  3. ALDURAZYME [Suspect]
     Active Substance: LARONIDASE
     Dosage: 46.4 INTERNATIONAL UNIT, QW
     Route: 042

REACTIONS (7)
  - Malaise [Unknown]
  - Catheter site thrombosis [Not Recovered/Not Resolved]
  - Catheter site pain [Not Recovered/Not Resolved]
  - Bronchitis [Recovering/Resolving]
  - Upper respiratory tract infection [Recovering/Resolving]
  - Ear pain [Recovering/Resolving]
  - Unevaluable event [Unknown]

NARRATIVE: CASE EVENT DATE: 2017
